FAERS Safety Report 13526991 (Version 1)
Quarter: 2017Q2

REPORT INFORMATION
  Report Type: Spontaneous
  Country: US (occurrence: US)
  Receive Date: 20170509
  Receipt Date: 20170509
  Transmission Date: 20170830
  Serious: No
  Sender: FDA-Public Use
  Company Number: None

PATIENT
  Age: 59 Day
  Sex: Female
  Weight: 57.6 kg

DRUGS (2)
  1. AMOXICILLIN 875MG [Suspect]
     Active Substance: AMOXICILLIN
     Indication: PHARYNGITIS STREPTOCOCCAL
     Dosage: ?          QUANTITY:20 TABLET(S);?
     Route: 048
  2. PEPCID AC [Concomitant]
     Active Substance: FAMOTIDINE

REACTIONS (1)
  - Drug dispensing error [None]

NARRATIVE: CASE EVENT DATE: 20170508
